FAERS Safety Report 21098739 (Version 1)
Quarter: 2022Q3

REPORT INFORMATION
  Report Type: Report from Study
  Country: US (occurrence: US)
  Receive Date: 20220719
  Receipt Date: 20220719
  Transmission Date: 20221027
  Serious: Yes (Other)
  Sender: FDA-Public Use
  Company Number: US-GILEAD-2022-0589134

PATIENT
  Age: 30 Year
  Sex: Male

DRUGS (1)
  1. AZTREONAM LYSINE [Suspect]
     Active Substance: AZTREONAM LYSINE
     Indication: Cystic fibrosis
     Dosage: 1 VIAL, 28 DAYS ON/28 DAYS OFF
     Route: 055
     Dates: start: 20140221

REACTIONS (2)
  - Gastrostomy [Recovered/Resolved]
  - Gastrostomy tube site complication [Not Recovered/Not Resolved]
